FAERS Safety Report 6955335-5 (Version None)
Quarter: 2010Q3

REPORT INFORMATION
  Report Type: 
  Country: None (occurrence: None)
  Receive Date: 20100826
  Receipt Date: 20100818
  Transmission Date: 20110219
  Serious: Yes (Hospitalization, Other)
  Sender: FDA-Public Use
  Company Number: 015131

PATIENT
  Sex: Male
  Weight: 69.6 kg

DRUGS (8)
  1. CERTOLIZUMAB PEGOL (CERTOLIZUMAB PEGOL) [Suspect]
     Indication: RHEUMATOID ARTHRITIS
     Dosage: 400MG 1X/2WEEKS, CDP870-027, NBR OF DOSES: 25 SUBCUTANEOUS), 400 MG 1X/2WEEKS SUBCUTANEOUS, 200 MG 1
     Route: 058
  2. METHOTREXATE [Concomitant]
  3. FOLIC ACID [Concomitant]
  4. VOLTAREN [Concomitant]
  5. ACETAMINOPHEN [Concomitant]
  6. AMITRIPTYLINEC [Concomitant]
  7. CALCIUM SANDOZ [Concomitant]
  8. ETIDRONATE DISODIUM [Concomitant]

REACTIONS (7)
  - CELLULITIS [None]
  - EAR DISCOMFORT [None]
  - FIBULA FRACTURE [None]
  - NECK PAIN [None]
  - POSTOPERATIVE WOUND INFECTION [None]
  - TIBIA FRACTURE [None]
  - WOUND SECRETION [None]
